FAERS Safety Report 13550593 (Version 1)
Quarter: 2017Q2

REPORT INFORMATION
  Report Type: Spontaneous
  Country: US (occurrence: US)
  Receive Date: 20170516
  Receipt Date: 20170516
  Transmission Date: 20170830
  Serious: Yes (Hospitalization)
  Sender: FDA-Public Use
  Company Number: None

PATIENT
  Age: 80 Year
  Sex: Male
  Weight: 91.1 kg

DRUGS (13)
  1. VICTOZA [Suspect]
     Active Substance: LIRAGLUTIDE
     Indication: DIABETES MELLITUS
     Dosage: CHRONIC; 0.6MG DAILY SQ
     Route: 058
  2. OSCAL [Concomitant]
     Active Substance: CALCIUM CARBONATE
  3. COREG [Concomitant]
     Active Substance: CARVEDILOL
  4. LASIX [Concomitant]
     Active Substance: FUROSEMIDE
  5. LEVAQUIN [Concomitant]
     Active Substance: LEVOFLOXACIN
  6. PROTONIX [Concomitant]
     Active Substance: PANTOPRAZOLE SODIUM
  7. LOPID [Concomitant]
     Active Substance: GEMFIBROZIL
  8. KLORCON [Concomitant]
  9. TRADJENTA [Suspect]
     Active Substance: LINAGLIPTIN
     Indication: DIABETES MELLITUS
     Dosage: CHRONIC; 5MG DAILY PO
     Route: 048
  10. WARFARIN [Concomitant]
     Active Substance: WARFARIN
  11. ZYLOPRIM [Concomitant]
     Active Substance: ALLOPURINOL
  12. ECOTRIN [Concomitant]
     Active Substance: ASPIRIN
  13. MEVACOR [Concomitant]
     Active Substance: LOVASTATIN

REACTIONS (1)
  - Hypoglycaemia [None]

NARRATIVE: CASE EVENT DATE: 20160409
